FAERS Safety Report 6452894-6 (Version None)
Quarter: 2009Q4

REPORT INFORMATION
  Report Type: 
  Country: None (occurrence: None)
  Receive Date: 20091124
  Receipt Date: 20090217
  Transmission Date: 20100525
  Serious: No
  Sender: FDA-Public Use
  Company Number: US-ABBOTT-09P-163-0558110-00

PATIENT
  Age: 52 Year
  Sex: Male
  Weight: 74.91 kg

DRUGS (5)
  1. TRICOR [Suspect]
     Indication: BLOOD TRIGLYCERIDES INCREASED
     Dates: start: 20020101
  2. VYTORIN [Suspect]
     Indication: BLOOD TRIGLYCERIDES INCREASED
     Dosage: 10MG/40MG
     Dates: start: 20080801, end: 20090216
  3. BLOOD PRESSURE MEDICATION [Concomitant]
     Indication: CARDIAC OPERATION
     Dosage: UNKNOWN
     Dates: start: 20010101
  4. BETA BLOCKERS [Concomitant]
     Indication: CARDIAC OPERATION
     Dosage: UNKNOWN
     Dates: start: 20010101
  5. COUMADIN [Concomitant]
     Indication: CARDIAC OPERATION
     Dosage: UNKNOWN
     Dates: start: 20010101

REACTIONS (4)
  - BACK PAIN [None]
  - DYSURIA [None]
  - MUSCLE SPASMS [None]
  - MYALGIA [None]
